FAERS Safety Report 7308108-8 (Version None)
Quarter: 2011Q1

REPORT INFORMATION
  Report Type: 
  Country: None (occurrence: None)
  Receive Date: 20110210
  Receipt Date: 20110126
  Transmission Date: 20110831
  Serious: Yes (Other)
  Sender: FDA-Public Use
  Company Number: 2011P1004161

PATIENT
  Age: 33 Year
  Sex: Female

DRUGS (4)
  1. CLOMIPRAMINE HCL [Suspect]
     Indication: ANXIETY
     Dosage: 200 MG;BID;PO
     Route: 048
     Dates: start: 20081126, end: 20090213
  2. CLOMIPRAMINE HCL [Suspect]
     Indication: ANXIETY
     Dosage: 200 MG;BID;PO
     Route: 048
     Dates: start: 20090213, end: 20090220
  3. PROZAC [Concomitant]
  4. XANAX [Concomitant]

REACTIONS (3)
  - MIGRAINE [None]
  - CONVULSION [None]
  - OVERDOSE [None]
